FAERS Safety Report 7003945-1 (Version None)
Quarter: 2010Q3

REPORT INFORMATION
  Report Type: 
  Country: None (occurrence: None)
  Receive Date: 20100917
  Receipt Date: 20100901
  Transmission Date: 20110219
  Serious: Yes (Other)
  Sender: FDA-Public Use
  Company Number: ACO_02063_2010

PATIENT
  Age: 47 Year
  Sex: Female
  Weight: 68.0396 kg

DRUGS (9)
  1. AMPYRA [Suspect]
     Indication: MULTIPLE SCLEROSIS
     Dosage: 10 MG BID ORAL; 10 MG QD ORAL; 10 MG BID ORAL
     Route: 048
     Dates: start: 20100401, end: 20100501
  2. AMPYRA [Suspect]
     Indication: MULTIPLE SCLEROSIS
     Dosage: 10 MG BID ORAL; 10 MG QD ORAL; 10 MG BID ORAL
     Route: 048
     Dates: start: 20100601, end: 20100701
  3. AMPYRA [Suspect]
     Indication: MULTIPLE SCLEROSIS
     Dosage: 10 MG BID ORAL; 10 MG QD ORAL; 10 MG BID ORAL
     Route: 048
     Dates: start: 20100701
  4. COPAXONE [Concomitant]
  5. PROVIGIL [Concomitant]
  6. TIZANIDINE HCL [Concomitant]
  7. DETROL [Concomitant]
  8. TOPAMAX [Concomitant]
  9. VITAMIN D [Concomitant]

REACTIONS (5)
  - MULTIPLE SCLEROSIS RELAPSE [None]
  - NASAL DRYNESS [None]
  - OROPHARYNGEAL PAIN [None]
  - THERAPEUTIC RESPONSE UNEXPECTED [None]
  - VOCAL CORD PARALYSIS [None]
